FAERS Safety Report 13192568 (Version 1)
Quarter: 2017Q1

REPORT INFORMATION
  Report Type: Spontaneous
  Country: US (occurrence: US)
  Receive Date: 20170207
  Receipt Date: 20170207
  Transmission Date: 20170428
  Serious: Yes (Disabling, Other)
  Sender: FDA-Public Use
  Company Number: None

PATIENT
  Age: 33 Year
  Sex: Male
  Weight: 89.55 kg

DRUGS (7)
  1. PROSCAR [Suspect]
     Active Substance: FINASTERIDE
     Indication: ALOPECIA
     Dates: start: 20020601, end: 20081231
  2. VITAMIN C + CALCIUM [Concomitant]
  3. MULTI-VITAMIN [Concomitant]
     Active Substance: .ALPHA.-TOCOPHEROL ACETATE, DL-\ASCORBIC ACID\CYANOCOBALAMIN\FLUORIDE ION\FOLIC ACID\NIACIN\PYRIDOXINE\RIBOFLAVIN\THIAMINE\VITAMIN A\VITAMIN D
  4. VITAMIN D [Concomitant]
     Active Substance: CHOLECALCIFEROL
  5. NASONEX [Concomitant]
     Active Substance: MOMETASONE FUROATE
  6. REXULTI [Concomitant]
     Active Substance: BREXPIPRAZOLE
  7. MAGNESIUM ZINC SUPPLEMENT [Concomitant]

REACTIONS (9)
  - Depressed level of consciousness [None]
  - Penile size reduced [None]
  - Dry skin [None]
  - Depression [None]
  - Muscle disorder [None]
  - Feeling jittery [None]
  - Decreased interest [None]
  - Activities of daily living impaired [None]
  - Memory impairment [None]

NARRATIVE: CASE EVENT DATE: 20020601
